FAERS Safety Report 6931653-1 (Version None)
Quarter: 2010Q3

REPORT INFORMATION
  Report Type: 
  Country: None (occurrence: None)
  Receive Date: 20100812
  Receipt Date: 20090626
  Transmission Date: 20110219
  Serious: No
  Sender: FDA-Public Use
  Company Number: 2009-00238

PATIENT
  Sex: Male

DRUGS (1)
  1. ZICAM INTENSE SINUS RELIEF [Suspect]
     Dosage: 1 DAY
     Dates: start: 20090610, end: 20090611

REACTIONS (1)
  - ANOSMIA [None]
